FAERS Safety Report 7375988-X (Version None)
Quarter: 2011Q1

REPORT INFORMATION
  Report Type: 
  Country: None (occurrence: None)
  Receive Date: 20110325
  Receipt Date: 20110314
  Transmission Date: 20110831
  Serious: Yes (Hospitalization)
  Sender: FDA-Public Use
  Company Number: PHHY2011ES20573

PATIENT
  Age: 78 Year
  Sex: Male

DRUGS (2)
  1. PREDNISONE [Interacting]
     Indication: RENAL VASCULITIS
     Dosage: 20 MG, QD
     Route: 048
     Dates: start: 20101001
  2. MYFORTIC [Suspect]
     Indication: RENAL VASCULITIS
     Dosage: 1.4 MG, QD
     Route: 048
     Dates: start: 20101001, end: 20101201

REACTIONS (14)
  - ASPERGILLUS TEST POSITIVE [None]
  - CYTOMEGALOVIRUS INFECTION [None]
  - ARRHYTHMIA [None]
  - ATRIAL FIBRILLATION [None]
  - DIARRHOEA [None]
  - NAUSEA [None]
  - BLOOD PRESSURE ABNORMAL [None]
  - ASTHENIA [None]
  - APHTHOUS STOMATITIS [None]
  - LOSS OF CONSCIOUSNESS [None]
  - BRONCHOPULMONARY ASPERGILLOSIS [None]
  - LUNG NEOPLASM [None]
  - VOMITING [None]
  - DRUG INTERACTION [None]
